FAERS Safety Report 24763567 (Version 5)
Quarter: 2025Q1

REPORT INFORMATION
  Report Type: Spontaneous
  Country: US (occurrence: US)
  Receive Date: 20241223
  Receipt Date: 20250315
  Transmission Date: 20250409
  Serious: No
  Sender: ABBVIE
  Company Number: US-ABBVIE-6056968

PATIENT
  Age: 62 Year
  Sex: Female
  Weight: 96.615 kg

DRUGS (10)
  1. LINZESS [Suspect]
     Active Substance: LINACLOTIDE
     Indication: Irritable bowel syndrome
     Dosage: FORM STRENGTH- 290 MICROGRAM, START DATE : 3 OR 4 YEARS AGO
     Route: 048
  2. LINZESS [Suspect]
     Active Substance: LINACLOTIDE
     Indication: Irritable bowel syndrome
     Dosage: 290 MICROGRAM
     Route: 048
  3. LINZESS [Suspect]
     Active Substance: LINACLOTIDE
     Indication: Irritable bowel syndrome
     Dosage: START DATE : 6 TO 8 YEAR AGO
     Route: 048
  4. CRESTOR [Concomitant]
     Active Substance: ROSUVASTATIN CALCIUM
     Indication: Product used for unknown indication
     Route: 048
  5. TYLENOL [Concomitant]
     Active Substance: ACETAMINOPHEN
     Indication: Product used for unknown indication
  6. ASPIRIN [Concomitant]
     Active Substance: ASPIRIN
     Indication: Product used for unknown indication
  7. SYNTHROID [Concomitant]
     Active Substance: LEVOTHYROXINE SODIUM
     Indication: Product used for unknown indication
  8. NEXIUM [Concomitant]
     Active Substance: ESOMEPRAZOLE MAGNESIUM
     Indication: Gastrooesophageal reflux disease
     Route: 048
  9. NURTEC ODT [Concomitant]
     Active Substance: RIMEGEPANT SULFATE
     Indication: Migraine
     Route: 048
  10. LEVOTHYROXINE [Concomitant]
     Active Substance: LEVOTHYROXINE
     Indication: Hypothyroidism
     Route: 048

REACTIONS (7)
  - Constipation [Recovered/Resolved]
  - Drug ineffective [Unknown]
  - Faecaloma [Recovered/Resolved]
  - Product physical consistency issue [Unknown]
  - Constipation [Recovered/Resolved]
  - Constipation [Recovered/Resolved]
  - Constipation [Recovered/Resolved]

NARRATIVE: CASE EVENT DATE: 20230101
